FAERS Safety Report 6545712-9 (Version None)
Quarter: 2010Q1

REPORT INFORMATION
  Report Type: 
  Country: None (occurrence: None)
  Receive Date: 20100121
  Receipt Date: 20100118
  Transmission Date: 20100710
  Serious: Yes (Death, Hospitalization, Other)
  Sender: FDA-Public Use
  Company Number: PHEH2009US15134

PATIENT
  Sex: Male

DRUGS (7)
  1. EXJADE [Suspect]
     Indication: MYELODYSPLASTIC SYNDROME
     Dosage: 1500 MG, DAILY
     Route: 048
     Dates: start: 20090615
  2. EXJADE [Suspect]
     Dosage: 750 MG, UNK
     Route: 048
     Dates: start: 20090810
  3. DECITABINE [Suspect]
     Dosage: 20MG/M2 D1-5 Q28D
     Dates: start: 20090615, end: 20090909
  4. VIDAZA [Suspect]
  5. SOTALOL [Concomitant]
     Dosage: 80 MG, BID
     Route: 048
     Dates: start: 20050614
  6. ACYCLOVIR [Concomitant]
     Dosage: 800 MG, BID
     Route: 048
  7. ASPIRIN [Concomitant]

REACTIONS (28)
  - ALANINE AMINOTRANSFERASE DECREASED [None]
  - BLOOD ALBUMIN DECREASED [None]
  - BLOOD CALCIUM DECREASED [None]
  - BLOOD CREATININE INCREASED [None]
  - BLOOD GLUCOSE INCREASED [None]
  - BLOOD LACTATE DEHYDROGENASE INCREASED [None]
  - BLOOD UREA INCREASED [None]
  - BLOOD URIC ACID INCREASED [None]
  - CARBON DIOXIDE INCREASED [None]
  - CONTUSION [None]
  - CREATININE RENAL CLEARANCE DECREASED [None]
  - DEMENTIA [None]
  - ECCHYMOSIS [None]
  - FATIGUE [None]
  - HAEMATOCRIT DECREASED [None]
  - HAEMOGLOBIN DECREASED [None]
  - INFECTION [None]
  - MALIGNANT NEOPLASM PROGRESSION [None]
  - MEMORY IMPAIRMENT [None]
  - PANCYTOPENIA [None]
  - PLATELET COUNT DECREASED [None]
  - PYREXIA [None]
  - RED BLOOD CELL COUNT DECREASED [None]
  - RED CELL DISTRIBUTION WIDTH INCREASED [None]
  - RENAL FAILURE ACUTE [None]
  - RENAL TUBULAR NECROSIS [None]
  - WHITE BLOOD CELL COUNT DECREASED [None]
  - WHITE BLOOD CELL COUNT INCREASED [None]
